FAERS Safety Report 9148532 (Version 2)
Quarter: 2013Q1

REPORT INFORMATION
  Report Type: Spontaneous
  Country: JP (occurrence: None)
  Receive Date: 20130201
  Receipt Date: 20130301
  Transmission Date: 20140127
  Serious: Yes (Death, Life-Threatening, Hospitalization)
  Sender: FDA-Public Use
  Company Number: TCI2012A04018

PATIENT
  Age: 64 Year
  Sex: Male

DRUGS (8)
  1. NESINA [Suspect]
     Indication: TYPE 2 DIABETES MELLITUS
     Route: 048
     Dates: start: 20120110, end: 20120717
  2. GLIMICRON [Concomitant]
  3. VOGLIBOSE [Concomitant]
  4. AMLODIN (AMLODIPINE BESILATE) [Concomitant]
  5. LEVEMIR (INSULIN DETERMIR) [Concomitant]
  6. PARIET (RABEPRAZOLE SODIUM) [Concomitant]
  7. ULCERLMIN (SUCRALFATE) [Concomitant]
  8. ACINON (NIZATIDINE) [Concomitant]

REACTIONS (1)
  - Pancreatic carcinoma [None]
